FAERS Safety Report 15643185 (Version 2)
Quarter: 2019Q1

REPORT INFORMATION
  Report Type: Spontaneous
  Country: US (occurrence: US)
  Receive Date: 20181121
  Receipt Date: 20190301
  Transmission Date: 20190417
  Serious: Yes (Other)
  Sender: FDA-Public Use
  Company Number: US-SA-2018SA316886

PATIENT
  Age: 63 Year
  Sex: Female
  Weight: 111 kg

DRUGS (3)
  1. NEOSAR [Concomitant]
     Active Substance: CYCLOPHOSPHAMIDE
  2. TAXOTERE [Suspect]
     Active Substance: DOCETAXEL
     Dosage: 174 MG, Q3W
     Route: 042
     Dates: start: 20090804, end: 20090804
  3. TAXOTERE [Suspect]
     Active Substance: DOCETAXEL
     Indication: BREAST CANCER FEMALE
     Dosage: 174 MG, Q3W
     Route: 042
     Dates: start: 20090602, end: 20090602

REACTIONS (1)
  - Alopecia [Recovering/Resolving]

NARRATIVE: CASE EVENT DATE: 201002
